FAERS Safety Report 8702371 (Version 2)
Quarter: 2013Q4

REPORT INFORMATION
  Report Type: Spontaneous
  Country: US (occurrence: US)
  Receive Date: 20120803
  Receipt Date: 20131101
  Transmission Date: 20140711
  Serious: No
  Sender: FDA-Public Use
  Company Number: US-009507513-84060132

PATIENT
  Sex: Female

DRUGS (2)
  1. CLINORIL [Suspect]
     Indication: PAIN IN EXTREMITY
     Route: 048
     Dates: start: 198308, end: 198308
  2. FELDENE [Concomitant]
     Dates: start: 198308, end: 19830820

REACTIONS (2)
  - Rash [Unknown]
  - Pruritus [Unknown]
